FAERS Safety Report 10337799 (Version 2)
Quarter: 2014Q3

REPORT INFORMATION
  Report Type: Spontaneous
  Country: US (occurrence: US)
  Receive Date: 20140724
  Receipt Date: 20140724
  Transmission Date: 20150326
  Serious: No
  Sender: FDA-Public Use
  Company Number: US-UNITED THERAPEUTICS-UTC-045969

PATIENT
  Sex: Female
  Weight: 68.03 kg

DRUGS (4)
  1. ADCIRCA [Concomitant]
     Active Substance: TADALAFIL
  2. COUMADIN [Concomitant]
     Active Substance: WARFARIN SODIUM
  3. LETAIRIS [Concomitant]
     Active Substance: AMBRISENTAN
  4. REMODULIN [Suspect]
     Active Substance: TREPROSTINIL
     Dosage: 0.146 UG/KG/MIN
     Route: 041
     Dates: start: 20090213

REACTIONS (7)
  - Device occlusion [Recovered/Resolved]
  - Headache [Recovering/Resolving]
  - Consciousness fluctuating [Recovering/Resolving]
  - Heart rate increased [Recovering/Resolving]
  - Drug dose omission [Unknown]
  - Seasonal allergy [Unknown]
  - Dizziness [Recovering/Resolving]
